FAERS Safety Report 17456560 (Version 5)
Quarter: 2020Q1

REPORT INFORMATION
  Report Type: Spontaneous
  Country: US (occurrence: US)
  Receive Date: 20200225
  Receipt Date: 20200317
  Transmission Date: 20200409
  Serious: No
  Sender: FDA-Public Use
  Company Number: US-PFIZER INC-2020083056

PATIENT
  Age: 74 Year
  Sex: Female
  Weight: 61.69 kg

DRUGS (2)
  1. LYRICA [Suspect]
     Active Substance: PREGABALIN
     Dosage: 225 MG, 2X/DAY (75 MG 3 TABS PO TWICE DAILY)
     Route: 048
     Dates: start: 20170912
  2. LYRICA [Suspect]
     Active Substance: PREGABALIN
     Indication: FIBROMYALGIA
     Dosage: 225 MG, 2X/DAY (75 MG 3 TABS BY MOUTH BID (TWICE A DAY))
     Route: 048
     Dates: start: 20091124

REACTIONS (10)
  - Eating disorder [Unknown]
  - Vomiting [Unknown]
  - Abdominal discomfort [Unknown]
  - Withdrawal syndrome [Recovering/Resolving]
  - Feeling of body temperature change [Unknown]
  - Asthenia [Unknown]
  - Sedation [Unknown]
  - Nausea [Unknown]
  - Malaise [Recovering/Resolving]
  - Chills [Unknown]
